FAERS Safety Report 5650464-0 (Version None)
Quarter: 2008Q1

REPORT INFORMATION
  Report Type: 
  Country: None (occurrence: None)
  Receive Date: 20080304
  Receipt Date: 20080304
  Transmission Date: 20080703
  Serious: Yes (Hospitalization)
  Sender: FDA-Public Use
  Company Number: None

PATIENT
  Age: 50 Year
  Sex: Female
  Weight: 107.9561 kg

DRUGS (2)
  1. CISPLATIN [Suspect]
     Indication: NEOPLASM MALIGNANT
     Dosage: 33MG/M2 DAYS 1-3 EA CYC
     Dates: start: 20080206, end: 20080208
  2. TARCEVA [Concomitant]

REACTIONS (6)
  - BLOOD PRESSURE ORTHOSTATIC [None]
  - DEHYDRATION [None]
  - MUCOSAL INFLAMMATION [None]
  - ORAL INTAKE REDUCED [None]
  - ORAL PAIN [None]
  - WEIGHT DECREASED [None]
